APPROVED DRUG PRODUCT: OMEPRAZOLE MAGNESIUM
Active Ingredient: OMEPRAZOLE MAGNESIUM
Strength: EQ 20MG BASE
Dosage Form/Route: CAPSULE, DELAYED RELEASE;ORAL
Application: A078878 | Product #001
Applicant: DR REDDYS LABORATORIES LTD
Approved: Jun 5, 2009 | RLD: No | RS: Yes | Type: OTC